FAERS Safety Report 18356278 (Version 1)
Quarter: 2020Q4

REPORT INFORMATION
  Report Type: Report from Study
  Country: JP (occurrence: JP)
  Receive Date: 20201007
  Receipt Date: 20201007
  Transmission Date: 20210114
  Serious: Yes (Other)
  Sender: FDA-Public Use
  Company Number: JP-SUN PHARMACEUTICAL INDUSTRIES LTD-2020RR-263330

PATIENT
  Age: 73 Year
  Sex: Male

DRUGS (5)
  1. CALCIUM FOLINAT [Suspect]
     Active Substance: LEUCOVORIN CALCIUM
     Indication: COLORECTAL CANCER METASTATIC
     Dosage: 200 MILLIGRAM/SQ. METER OVER THE COURSE OF 2 HOURS
     Route: 042
  2. OXALIPLATIN. [Suspect]
     Active Substance: OXALIPLATIN
     Indication: COLORECTAL CANCER METASTATIC
     Dosage: 85 MILLIGRAM/SQ. METER
     Route: 042
  3. FLUOROURACIL. [Suspect]
     Active Substance: FLUOROURACIL
     Indication: COLORECTAL CANCER METASTATIC
     Dosage: 2400 MILLIGRAM/SQ. METER, ONDAY 1, CONTINUOUS 46-HOUR INFUSION
     Route: 042
  4. BEVACIZUMAB. [Suspect]
     Active Substance: BEVACIZUMAB
     Indication: COLORECTAL CANCER METASTATIC
     Dosage: 5 MILLIGRAM/KILOGRAM ON DAY 1
     Route: 042
  5. IRINOTECAN [Suspect]
     Active Substance: IRINOTECAN
     Indication: COLORECTAL CANCER METASTATIC
     Dosage: 150 MILLIGRAM/SQ. METER OVER THE COURSE OF 1 HOUR ON DAY 1
     Route: 042

REACTIONS (6)
  - Pollakiuria [Unknown]
  - Vomiting [Unknown]
  - Ascites [Unknown]
  - Nausea [Unknown]
  - Decreased appetite [Unknown]
  - Oedema [Unknown]
